FAERS Safety Report 6877087-X (Version None)
Quarter: 2010Q3

REPORT INFORMATION
  Report Type: 
  Country: None (occurrence: None)
  Receive Date: 20100727
  Receipt Date: 20100727
  Transmission Date: 20110219
  Serious: Yes (Other)
  Sender: FDA-Public Use
  Company Number: None

PATIENT
  Sex: Female
  Weight: 87.9978 kg

DRUGS (2)
  1. FLUOXETINE [Suspect]
     Indication: DEPRESSION
     Dosage: 40MG DAILY PO
     Route: 048
     Dates: start: 20090202, end: 20090216
  2. LINEZOLID [Suspect]
     Indication: PNEUMONIA
     Dosage: 600MG Q 12 HOURS IV
     Route: 042
     Dates: start: 20090213, end: 20090216

REACTIONS (4)
  - ADDISON'S DISEASE [None]
  - CONVULSION [None]
  - HYPOXIA [None]
  - PNEUMONIA VIRAL [None]
